FAERS Safety Report 23227353 (Version 1)
Quarter: 2023Q4

REPORT INFORMATION
  Report Type: Report from Study
  Country: CA (occurrence: CA)
  Receive Date: 20231124
  Receipt Date: 20231124
  Transmission Date: 20240110
  Serious: Yes (Other)
  Sender: FDA-Public Use
  Company Number: CA-TEVA-2023-CA-2949235

PATIENT
  Age: 42 Year
  Sex: Female

DRUGS (1)
  1. AJOVY [Suspect]
     Active Substance: FREMANEZUMAB-VFRM
     Indication: Migraine prophylaxis
     Route: 058
     Dates: start: 20211120

REACTIONS (10)
  - Choking [Unknown]
  - Dizziness [Unknown]
  - Injection site mass [Unknown]
  - Rash [Unknown]
  - Nodule [Not Recovered/Not Resolved]
  - Drug hypersensitivity [Unknown]
  - Migraine [Unknown]
  - Pruritus [Not Recovered/Not Resolved]
  - Pigmentation disorder [Unknown]
  - Pain [Unknown]
